FAERS Safety Report 19806745 (Version 1)
Quarter: 2021Q3

REPORT INFORMATION
  Report Type: Spontaneous
  Country: US (occurrence: US)
  Receive Date: 20210908
  Receipt Date: 20210908
  Transmission Date: 20211014
  Serious: Yes (Death, Hospitalization, Other)
  Sender: FDA-Public Use
  Company Number: US-AMGEN-USASP2021138830

PATIENT
  Age: 57 Year
  Sex: Male

DRUGS (9)
  1. ROMIPLOSTIM [Suspect]
     Active Substance: ROMIPLOSTIM
     Indication: OFF LABEL USE
  2. DECITABINE. [Concomitant]
     Active Substance: DECITABINE
  3. ERYTHROPOIETIN [Concomitant]
     Active Substance: ERYTHROPOIETIN
  4. AMINOCAPROIC ACID. [Concomitant]
     Active Substance: AMINOCAPROIC ACID
  5. VITAMIN B12 [VITAMIN B12 NOS] [Concomitant]
     Active Substance: CYANOCOBALAMIN
  6. IRON [Concomitant]
     Active Substance: IRON
     Route: 042
  7. VENETOCLAX. [Concomitant]
     Active Substance: VENETOCLAX
  8. ROMIPLOSTIM [Suspect]
     Active Substance: ROMIPLOSTIM
     Indication: PROPHYLAXIS
     Dosage: UNK UNK, QWK
     Route: 065
  9. FOLATE [Concomitant]
     Active Substance: FOLATE SODIUM

REACTIONS (4)
  - Off label use [Unknown]
  - Unevaluable event [Unknown]
  - Malaise [Unknown]
  - Death [Fatal]
